FAERS Safety Report 8274622-4 (Version None)
Quarter: 2012Q2

REPORT INFORMATION
  Report Type: 
  Country: None (occurrence: None)
  Receive Date: 20120411
  Receipt Date: 20110811
  Transmission Date: 20120825
  Serious: Yes (Other)
  Sender: FDA-Public Use
  Company Number: CA-GLAXOSMITHKLINE-A0940428A

PATIENT
  Sex: Female
  Weight: 34.1 kg

DRUGS (6)
  1. ALOE [Concomitant]
  2. NASAL SPRAY [Concomitant]
     Indication: SINUSITIS
  3. EYE DROPS [Concomitant]
     Indication: GLAUCOMA
  4. ADVAIR DISKUS 100/50 [Suspect]
     Indication: BRONCHITIS
     Dosage: 1PUFF PER DAY
     Route: 055
     Dates: start: 20010101
  5. ADALAT [Concomitant]
  6. NATURAL MEDICATION [Concomitant]

REACTIONS (7)
  - ANXIETY [None]
  - OBSTRUCTIVE AIRWAYS DISORDER [None]
  - GLAUCOMA [None]
  - GLOSSOPTOSIS [None]
  - DYSPNOEA [None]
  - PALPITATIONS [None]
  - UPPER LIMB FRACTURE [None]
